FAERS Safety Report 10008725 (Version 1)
Quarter: 2014Q1

REPORT INFORMATION
  Report Type: Spontaneous
  Country: US (occurrence: US)
  Receive Date: 20140312
  Receipt Date: 20140312
  Transmission Date: 20141002
  Serious: No
  Sender: FDA-Public Use
  Company Number: US-INCYTE CORPORATION-2012IN000272

PATIENT
  Sex: Male

DRUGS (4)
  1. JAKAFI [Suspect]
     Indication: POLYCYTHAEMIA VERA
     Dosage: 15 MG, BID
     Route: 048
     Dates: start: 201201
  2. HYDROXYUREA [Concomitant]
     Dosage: 500 MG, UNK
     Route: 048
  3. SINGULAIR [Concomitant]
     Dosage: 10 MG, QD
     Route: 048
  4. ADVAIR [Concomitant]
     Dosage: UNK, BID
     Route: 048

REACTIONS (1)
  - White blood cell count increased [Unknown]
